FAERS Safety Report 8985562 (Version 1)
Quarter: 2012Q4

REPORT INFORMATION
  Report Type: 
  Country: DE (occurrence: DE)
  Receive Date: 20121226
  Receipt Date: 20121226
  Transmission Date: 20130627
  Serious: Yes (Other)
  Sender: FDA-Public Use
  Company Number: DE-PFIZER INC-2012321742

PATIENT
  Sex: Female

DRUGS (1)
  1. LEIOS [Suspect]

REACTIONS (5)
  - Thyroid disorder [Unknown]
  - Fungal infection [Unknown]
  - Pruritus [Unknown]
  - Autoimmune thyroiditis [None]
  - Hypothyroidism [None]
